FAERS Safety Report 23081506 (Version 2)
Quarter: 2023Q4

REPORT INFORMATION
  Report Type: Spontaneous
  Country: CN (occurrence: CN)
  Receive Date: 20231019
  Receipt Date: 20231027
  Transmission Date: 20240110
  Serious: Yes (Hospitalization)
  Sender: FDA-Public Use
  Company Number: CN-AMGEN-CHNSP2023184676

PATIENT
  Age: 60 Year
  Sex: Female
  Weight: 45 kg

DRUGS (5)
  1. XGEVA [Suspect]
     Active Substance: DENOSUMAB
     Indication: Neoplasm malignant
     Dosage: 120 MILLIGRAM
     Route: 042
     Dates: start: 20230817, end: 20230817
  2. LOBAPLATIN [Suspect]
     Active Substance: LOBAPLATIN
     Indication: Neoplasm malignant
     Dosage: 50 MILLIGRAM
     Route: 042
     Dates: end: 20230817
  3. PACLITAXEL [Suspect]
     Active Substance: PACLITAXEL
     Indication: Neoplasm malignant
     Dosage: 300 MILLIGRAM
     Route: 042
     Dates: end: 20230817
  4. SODIUM CHLORIDE [Concomitant]
     Active Substance: SODIUM CHLORIDE
     Dosage: 205 MILLILITER
     Route: 042
     Dates: start: 20230817, end: 20230817
  5. SODIUM CHLORIDE [Concomitant]
     Active Substance: SODIUM CHLORIDE
     Dosage: 205 MILLILITER
     Route: 042
     Dates: start: 20230817, end: 20230817

REACTIONS (2)
  - White blood cell count decreased [Recovering/Resolving]
  - Platelet count decreased [Recovering/Resolving]

NARRATIVE: CASE EVENT DATE: 20230823
